FAERS Safety Report 4491292-1 (Version None)
Quarter: 2004Q4

REPORT INFORMATION
  Report Type: 
  Country: None (occurrence: None)
  Receive Date: 20041101
  Receipt Date: 20041101
  Transmission Date: 20050328
  Serious: Yes (Life-Threatening)
  Sender: FDA-Public Use
  Company Number: None

PATIENT
  Age: 32 Year
  Sex: Female
  Weight: 61.2356 kg

DRUGS (1)
  1. CALCITRIOL   0.25MCG  LEMMON [Suspect]
     Indication: HYPOPARATHYROIDISM
     Dosage: 0.25MCG ONCE DAILY ORAL
     Route: 048
     Dates: start: 20001119, end: 20041031

REACTIONS (6)
  - ARRHYTHMIA [None]
  - BLOOD CALCIUM DECREASED [None]
  - CHEST PAIN [None]
  - HYPERTENSION [None]
  - PHARMACEUTICAL PRODUCT COMPLAINT [None]
  - TETANY [None]
